FAERS Safety Report 7235336-2 (Version None)
Quarter: 2011Q1

REPORT INFORMATION
  Report Type: 
  Country: None (occurrence: None)
  Receive Date: 20110120
  Receipt Date: 20101118
  Transmission Date: 20110831
  Serious: Yes (Other)
  Sender: FDA-Public Use
  Company Number: JP-GENZYME-FABR-1001632

PATIENT

DRUGS (7)
  1. CARBAMAZEPINE [Concomitant]
     Dosage: 200 MG, UNK
  2. METHYLPREDNISOLONE [Concomitant]
     Indication: PAIN IN EXTREMITY
  3. FABRAZYME [Suspect]
     Indication: FABRY'S DISEASE
     Dosage: UNK
     Route: 042
     Dates: start: 20031001
  4. LOXOPROFEN [Concomitant]
     Dosage: 120 MG, UNK
     Dates: start: 20050101
  5. CLOPIDOGREL [Concomitant]
     Dosage: 75 MG, UNK
     Dates: start: 20070101
  6. DICLOFENAC SODIUM [Concomitant]
     Dosage: 50 MG, UNK
     Dates: start: 20010101, end: 20050101
  7. ASPIRIN [Concomitant]
     Dosage: 100 MG, UNK
     Dates: start: 20020101, end: 20070101

REACTIONS (3)
  - CEREBRAL INFARCTION [None]
  - HEMIPLEGIA [None]
  - SPEECH DISORDER [None]
